FAERS Safety Report 23016367 (Version 1)
Quarter: 2023Q4

REPORT INFORMATION
  Report Type: Report from Study
  Country: CA (occurrence: CA)
  Receive Date: 20231002
  Receipt Date: 20231002
  Transmission Date: 20240110
  Serious: Yes (Other)
  Sender: FDA-Public Use
  Company Number: CA-ABBVIE-5429413

PATIENT
  Age: 38 Year
  Sex: Female

DRUGS (1)
  1. LINACLOTIDE [Suspect]
     Active Substance: LINACLOTIDE
     Indication: Irritable bowel syndrome
     Route: 048

REACTIONS (3)
  - Cholecystectomy [Unknown]
  - Intentional product misuse [Unknown]
  - Hernia [Unknown]

NARRATIVE: CASE EVENT DATE: 20230818
